FAERS Safety Report 8159254 (Version 6)
Quarter: 2013Q3

REPORT INFORMATION
  Report Type: Report from Study
  Country: US (occurrence: US)
  Receive Date: 20110928
  Receipt Date: 20130924
  Transmission Date: 20140515
  Serious: Yes (Hospitalization, Other)
  Sender: FDA-Public Use
  Company Number: US-ELI_LILLY_AND_COMPANY-US201109005924

PATIENT
  Age: 42 Year
  Sex: Female
  Weight: 96.15 kg

DRUGS (22)
  1. SOMATROPIN [Suspect]
     Indication: GROWTH HORMONE DEFICIENCY
     Dosage: 0.2 MG, QD
     Dates: start: 200911
  2. ALBUTEROL [Concomitant]
  3. FOLIC ACID [Concomitant]
  4. MVI [Concomitant]
  5. VITAMIN D3 [Concomitant]
  6. FISH OIL [Concomitant]
  7. SYNTHROID [Concomitant]
  8. B COMPLEX [Concomitant]
  9. GABAPENTIN [Concomitant]
  10. ATROVENT [Concomitant]
  11. INTAL [Concomitant]
  12. COLACE [Concomitant]
  13. CALCIUM [Concomitant]
  14. METOPROLOL [Concomitant]
  15. KETOCONAZOLE [Concomitant]
  16. METFORMIN [Concomitant]
  17. NIZORAL [Concomitant]
  18. MAG-OX [Concomitant]
  19. MURO 128 [Concomitant]
  20. RESTASIS [Concomitant]
  21. SYSTANE                            /00678601/ [Concomitant]
  22. DICLOFENAC SODIUM [Concomitant]

REACTIONS (11)
  - Rectocele [Recovered/Resolved]
  - Meniscus injury [Unknown]
  - Arthritis [Unknown]
  - Keratectomy [Unknown]
  - Adrenal disorder [Unknown]
  - Cushing^s syndrome [Unknown]
  - Gastrointestinal motility disorder [Recovered/Resolved]
  - Anal fissure [Recovered/Resolved]
  - Rectal tenesmus [Recovered/Resolved]
  - Magnesium metabolism disorder [Unknown]
  - Muscle spasms [Unknown]
